FAERS Safety Report 11231489 (Version 1)
Quarter: 2015Q3

REPORT INFORMATION
  Report Type: Spontaneous
  Country: FR (occurrence: FR)
  Receive Date: 20150701
  Receipt Date: 20150701
  Transmission Date: 20151125
  Serious: Yes (Hospitalization)
  Sender: FDA-Public Use
  Company Number: FR-SA-2015SA094042

PATIENT
  Age: 30 Year
  Sex: Male

DRUGS (3)
  1. IZILOX [Suspect]
     Active Substance: MOXIFLOXACIN HYDROCHLORIDE
     Indication: HIDRADENITIS
     Route: 048
     Dates: start: 20150223, end: 20150505
  2. RIFADINE [Suspect]
     Active Substance: RIFAMPIN
     Indication: HIDRADENITIS
     Route: 048
     Dates: start: 20150223, end: 20150504
  3. FLAGYL [Suspect]
     Active Substance: METRONIDAZOLE\METRONIDAZOLE HYDROCHLORIDE
     Indication: HIDRADENITIS
     Route: 048
     Dates: start: 20150223, end: 20150405

REACTIONS (1)
  - Pulmonary embolism [Recovering/Resolving]

NARRATIVE: CASE EVENT DATE: 20150404
